FAERS Safety Report 8776700 (Version 2)
Quarter: 2012Q4

REPORT INFORMATION
  Report Type: 
  Country: PL (occurrence: PL)
  Receive Date: 20120906
  Receipt Date: 20120927
  Transmission Date: 20130627
  Serious: Yes (Hospitalization)
  Sender: FDA-Public Use
  Company Number: PL-ELI_LILLY_AND_COMPANY-PL201208009544

PATIENT
  Age: 35 Year
  Sex: Male

DRUGS (2)
  1. ZYPADHERA [Suspect]
     Dosage: UNK, unknown
     Dates: start: 20120825
  2. ZYPREXA [Suspect]
     Route: 048

REACTIONS (2)
  - Mental status changes [Unknown]
  - Drug ineffective [Unknown]
